FAERS Safety Report 5065209-5 (Version None)
Quarter: 2006Q3

REPORT INFORMATION
  Report Type: 
  Country: None (occurrence: None)
  Receive Date: 20060706
  Receipt Date: 20060410
  Transmission Date: 20061208
  Serious: Yes (Other)
  Sender: FDA-Public Use
  Company Number: 23391

PATIENT
  Age: 50 Year
  Sex: Female
  Weight: 105.6881 kg

DRUGS (1)
  1. MIDAZOLAM HCL [Suspect]
     Indication: COLONOSCOPY
     Dosage: 10MG
     Dates: start: 20051220

REACTIONS (1)
  - DRUG INEFFECTIVE [None]
